FAERS Safety Report 7353752-5 (Version None)
Quarter: 2011Q1

REPORT INFORMATION
  Report Type: 
  Country: None (occurrence: None)
  Receive Date: 20110315
  Receipt Date: 20110224
  Transmission Date: 20110831
  Serious: Yes (Hospitalization, Other)
  Sender: FDA-Public Use
  Company Number: US-NAPPMUNDI-USA-2010-0048807

PATIENT
  Sex: Female

DRUGS (4)
  1. OXYCONTIN [Suspect]
     Indication: PRODUCT USED FOR UNKNOWN INDICATION
     Dosage: 40 MG, SEE TEXT
  2. OXYCONTIN [Suspect]
     Dosage: 10 MG, SEE TEXT
  3. OXYCONTIN [Suspect]
     Dosage: 80 MG, SEE TEXT
  4. OXYCONTIN [Suspect]
     Dosage: 20 MG, SEE TEXT

REACTIONS (4)
  - URINARY INCONTINENCE [None]
  - NEPHROLITHIASIS [None]
  - CARDIAC ARREST [None]
  - RENAL HYPERTROPHY [None]
